FAERS Safety Report 10136496 (Version 2)
Quarter: 2017Q1

REPORT INFORMATION
  Report Type: Other
  Country: FR (occurrence: FR)
  Receive Date: 20140425
  Receipt Date: 20170308
  Transmission Date: 20170428
  Serious: Yes (Disabling)
  Sender: FDA-Public Use
  Company Number: FR-ALSI-201400073

PATIENT
  Age: 38 Year
  Sex: Female

DRUGS (1)
  1. OXYGEN MEDICINAL [Suspect]
     Active Substance: OXYGEN
     Route: 055

REACTIONS (3)
  - Product quality issue [None]
  - Traumatic haematoma [None]
  - Foot fracture [None]
